FAERS Safety Report 6677413-0 (Version None)
Quarter: 2010Q2

REPORT INFORMATION
  Report Type: 
  Country: None (occurrence: None)
  Receive Date: 20100412
  Receipt Date: 20100115
  Transmission Date: 20101027
  Serious: No
  Sender: FDA-Public Use
  Company Number: CA-ALEXION-A201000023

PATIENT
  Sex: Male

DRUGS (12)
  1. SOLIRIS [Suspect]
     Indication: PAROXYSMAL NOCTURNAL HAEMOGLOBINURIA
     Dosage: 600 MG, QWK
     Route: 042
     Dates: start: 20091106
  2. SOLIRIS [Suspect]
     Dosage: 900 MG, UNK
     Route: 042
  3. COUMADIN [Concomitant]
     Dosage: UNK
     Route: 048
  4. PREDNISOLONE [Concomitant]
     Dosage: UNK
     Route: 048
  5. LASIX [Concomitant]
     Dosage: UNK
     Route: 048
  6. ADALAT [Concomitant]
     Dosage: UNK
     Route: 048
  7. ZANTAC                             /00550802/ [Concomitant]
     Dosage: UNK
     Route: 048
  8. VITAMIN A [Concomitant]
     Dosage: UNK
     Route: 048
  9. IRON [Concomitant]
     Dosage: UNK
     Route: 048
  10. CALCIUM [Concomitant]
     Dosage: UNK
     Route: 048
  11. FOSAMAX [Concomitant]
     Dosage: UNK
     Route: 048
  12. FOLIC ACID [Concomitant]
     Dosage: UNK
     Route: 048

REACTIONS (2)
  - ANXIETY [None]
  - NASOPHARYNGITIS [None]
